FAERS Safety Report 8085400-3 (Version None)
Quarter: 2012Q1

REPORT INFORMATION
  Report Type: 
  Country: None (occurrence: None)
  Receive Date: 20120128
  Receipt Date: 20110428
  Transmission Date: 20120608
  Serious: No
  Sender: FDA-Public Use
  Company Number: PR-ABBOTT-11P-131-0713089-00

PATIENT
  Sex: Female
  Weight: 79.45 kg

DRUGS (6)
  1. METHOTREXATE [Concomitant]
     Indication: RHEUMATOID ARTHRITIS
     Dosage: 10MG WEEKLY; 4 TABLETS WEEKLY
     Route: 048
  2. ENALAPRIL MALEATE [Suspect]
     Indication: HYPERTENSION
     Dates: start: 20100201
  3. HUMIRA [Suspect]
     Indication: RHEUMATOID ARTHRITIS
     Dosage: 1 PEN EVERY 15 DAYS
     Route: 058
     Dates: start: 20090101
  4. ENALAPRIL [Concomitant]
     Route: 048
  5. FLEXERIL [Concomitant]
     Indication: SURGERY
     Dosage: AS INDICATED
     Route: 048
  6. LEXAPRO [Concomitant]
     Indication: DEPRESSION
     Dates: start: 20110419

REACTIONS (8)
  - MOBILITY DECREASED [None]
  - TREMOR [None]
  - HYPERTENSION [None]
  - SINUSITIS [None]
  - PRODUCT QUALITY ISSUE [None]
  - LARYNGITIS [None]
  - QUALITY OF LIFE DECREASED [None]
  - FALL [None]
